FAERS Safety Report 13523581 (Version 1)
Quarter: 2017Q2

REPORT INFORMATION
  Report Type: Spontaneous
  Country: CN (occurrence: CN)
  Receive Date: 20170508
  Receipt Date: 20170508
  Transmission Date: 20170830
  Serious: Yes (Hospitalization)
  Sender: FDA-Public Use
  Company Number: CN-BAYER-2017-056928

PATIENT
  Age: 42 Year
  Sex: Female

DRUGS (2)
  1. ULTRAVIST [Suspect]
     Active Substance: IOPROMIDE
     Indication: ABDOMINAL PAIN
  2. ULTRAVIST [Suspect]
     Active Substance: IOPROMIDE
     Indication: ABDOMEN SCAN
     Dosage: 80 ML, ONCE
     Route: 042
     Dates: start: 20170321, end: 20170321

REACTIONS (7)
  - Thrombosis [None]
  - Blood pressure decreased [Recovered/Resolved]
  - Rib fracture [None]
  - Product quality issue [None]
  - Anaphylactic shock [Recovered/Resolved]
  - Laryngeal oedema [Recovered/Resolved]
  - Loss of consciousness [Recovered/Resolved]

NARRATIVE: CASE EVENT DATE: 2017
